FAERS Safety Report 7907753-6 (Version None)
Quarter: 2011Q4

REPORT INFORMATION
  Report Type: 
  Country: None (occurrence: None)
  Receive Date: 20111110
  Receipt Date: 20111103
  Transmission Date: 20120403
  Serious: Yes (Other)
  Sender: FDA-Public Use
  Company Number: US-US-EMD SERONO, INC.-7093973

PATIENT
  Sex: Female

DRUGS (1)
  1. REBIF [Suspect]
     Indication: MULTIPLE SCLEROSIS
     Route: 058
     Dates: start: 20061106

REACTIONS (5)
  - HERPES ZOSTER [None]
  - AGEUSIA [None]
  - ANOSMIA [None]
  - SINUSITIS [None]
  - MULTIPLE SCLEROSIS RELAPSE [None]
